FAERS Safety Report 14212435 (Version 1)
Quarter: 2017Q4

REPORT INFORMATION
  Report Type: Spontaneous
  Country: DE (occurrence: DE)
  Receive Date: 20171121
  Receipt Date: 20171121
  Transmission Date: 20180321
  Serious: No
  Sender: FDA-Public Use
  Company Number: DE-BIOGEN-2017BV000419

PATIENT
  Sex: Female

DRUGS (1)
  1. ELOCTA [Suspect]
     Active Substance: EFMOROCTOCOG ALFA
     Indication: FACTOR VIII DEFICIENCY
     Dosage: TWO HOURS PRIOR TO DELIVERY
     Route: 065

REACTIONS (1)
  - Pregnancy [Recovered/Resolved]
